FAERS Safety Report 13257031 (Version 2)
Quarter: 2017Q1

REPORT INFORMATION
  Report Type: Report from Study
  Country: DE (occurrence: DE)
  Receive Date: 20170221
  Receipt Date: 20170224
  Transmission Date: 20170428
  Serious: Yes (Hospitalization, Other)
  Sender: FDA-Public Use
  Company Number: DE-INCYTE CORPORATION-2016IN008070

PATIENT
  Age: 69 Year
  Sex: Male
  Weight: 85.9 kg

DRUGS (5)
  1. INCB018424 [Suspect]
     Active Substance: RUXOLITINIB
     Indication: PRIMARY MYELOFIBROSIS
     Dosage: 15 MG, UNK
     Route: 048
     Dates: start: 20121030
  2. MST [Concomitant]
     Active Substance: MORPHINE SULFATE\NALTREXONE HYDROCHLORIDE
     Indication: PAIN
     Dosage: 30 MG, QD
     Route: 065
     Dates: start: 20160315
  3. EXJADE [Concomitant]
     Active Substance: DEFERASIROX
     Indication: IRON OVERLOAD
     Dosage: 2000 MG, QD
     Route: 065
     Dates: start: 20070625
  4. INSULIN [Concomitant]
     Active Substance: INSULIN NOS
     Indication: DIABETES MELLITUS
     Dosage: (17-0-14)
     Route: 065
     Dates: start: 19990501
  5. INCB018424 [Suspect]
     Active Substance: RUXOLITINIB
     Dosage: 15 MG, QD
     Route: 048
     Dates: start: 20160316, end: 20161103

REACTIONS (3)
  - Weight decreased [Not Recovered/Not Resolved]
  - Lymphatic fistula [Recovered/Resolved]
  - Fistula [Recovered/Resolved]

NARRATIVE: CASE EVENT DATE: 20160609
